FAERS Safety Report 10777600 (Version 6)
Quarter: 2021Q2

REPORT INFORMATION
  Report Type: Spontaneous
  Country: US (occurrence: US)
  Receive Date: 20150209
  Receipt Date: 20210413
  Transmission Date: 20210716
  Serious: Yes (Hospitalization)
  Sender: FDA-Public Use
  Company Number: US-PFIZER INC-2015047234

PATIENT
  Age: 67 Year
  Sex: Female
  Weight: 82.55 kg

DRUGS (2)
  1. NORPACE [Suspect]
     Active Substance: DISOPYRAMIDE PHOSPHATE
     Indication: VENTRICULAR TACHYCARDIA
     Dosage: 100 MG, 4X/DAY
     Route: 048
     Dates: start: 201501
  2. NORPACE [Suspect]
     Active Substance: DISOPYRAMIDE PHOSPHATE
     Dosage: 200 MG, 2X/DAY [100 MG TWO CAPSULES EVERY 12 HOURS BY MOUTH]
     Route: 048

REACTIONS (4)
  - Product dose omission issue [Unknown]
  - Palpitations [Recovered/Resolved]
  - Product dispensing error [Unknown]
  - Product name confusion [Unknown]

NARRATIVE: CASE EVENT DATE: 201501
